FAERS Safety Report 6370096-9 (Version None)
Quarter: 2009Q3

REPORT INFORMATION
  Report Type: 
  Country: None (occurrence: None)
  Receive Date: 20090923
  Receipt Date: 20070504
  Transmission Date: 20100115
  Serious: No
  Sender: FDA-Public Use
  Company Number: US-ASTRAZENECA-2006UW21401

PATIENT
  Age: 56 Year
  Sex: Male
  Weight: 91.6 kg

DRUGS (32)
  1. SEROQUEL [Suspect]
     Indication: ANGER
     Route: 048
     Dates: start: 20000101, end: 20020101
  2. SEROQUEL [Suspect]
     Indication: AGITATION
     Route: 048
     Dates: start: 20000101, end: 20020101
  3. SEROQUEL [Suspect]
     Dosage: 25-50 MG
     Route: 048
     Dates: start: 20000101, end: 20040809
  4. SEROQUEL [Suspect]
     Dosage: 25-50 MG
     Route: 048
     Dates: start: 20000101, end: 20040809
  5. WELLBUTRIN [Concomitant]
  6. ZOLOFT [Concomitant]
  7. XANAX [Concomitant]
  8. TRICOR [Concomitant]
     Dosage: 145 MG - 160 MG
     Route: 048
     Dates: start: 20030115
  9. RISPERDAL [Concomitant]
     Dosage: 1 MG - 3 MG
  10. ZOCOR [Concomitant]
     Dosage: 40 MG - 100 MG
     Dates: start: 20050112
  11. PREVACID [Concomitant]
  12. FLONASE [Concomitant]
     Dosage: 50MCG/ ACT SUSPENSION
  13. BACTRIM [Concomitant]
     Dosage: 800 MG - 160 MG
  14. LOTRISONE [Concomitant]
     Dosage: 1 %- 0.05 %
  15. CYMBALTA [Concomitant]
     Dosage: 30 MG - 60 MG
     Dates: end: 20071106
  16. SKELAXIN [Concomitant]
  17. TUSSIONEX [Concomitant]
  18. DENAVIR [Concomitant]
  19. TAMIFLU [Concomitant]
  20. ULTRAM [Concomitant]
  21. VICOPROFEN [Concomitant]
  22. CLOTRIMAZOLE [Concomitant]
  23. BUPROPION HCL [Concomitant]
  24. METFORMIN HYDROCHLORIDE [Concomitant]
     Indication: DIABETES MELLITUS
  25. AMOXICILLIN [Concomitant]
  26. AMOXICILLIN [Concomitant]
  27. CEFACLOR [Concomitant]
  28. CEPHALOSPORIN [Concomitant]
  29. CARISOPRODOL [Concomitant]
  30. HYDROCODONE [Concomitant]
     Dosage: 10 / 650 MG
  31. HYDROCODONE [Concomitant]
     Dosage: 7.5 / 750 MG
  32. NABUMETONE [Concomitant]

REACTIONS (7)
  - ADVERSE EVENT [None]
  - BLOOD CHOLESTEROL INCREASED [None]
  - BLOOD TRIGLYCERIDES INCREASED [None]
  - DIABETES MELLITUS [None]
  - HYPERCHOLESTEROLAEMIA [None]
  - OBESITY [None]
  - TYPE 2 DIABETES MELLITUS [None]
